FAERS Safety Report 7050004-8 (Version None)
Quarter: 2010Q4

REPORT INFORMATION
  Report Type: 
  Country: None (occurrence: None)
  Receive Date: 20101018
  Receipt Date: 20101008
  Transmission Date: 20110411
  Serious: Yes (Hospitalization)
  Sender: FDA-Public Use
  Company Number: JP-ROCHE-709311

PATIENT
  Sex: Female
  Weight: 46 kg

DRUGS (5)
  1. AVASTIN [Suspect]
     Indication: COLON CANCER METASTATIC
     Route: 041
     Dates: start: 20100520, end: 20100603
  2. ELPLAT [Suspect]
     Indication: COLON CANCER METASTATIC
     Dosage: NOTE: DOSAGE IS UNCERTAIN.
     Route: 041
     Dates: start: 20100520, end: 20100603
  3. FLUOROURACIL [Suspect]
     Indication: COLON CANCER METASTATIC
     Dosage: ROUTE: IV BOLUS
     Route: 042
     Dates: start: 20100520, end: 20100603
  4. FLUOROURACIL [Suspect]
     Dosage: FORM IV DRIP
     Route: 042
     Dates: start: 20100520, end: 20100604
  5. LEUCOVORIN CALCIUM [Suspect]
     Indication: COLON CANCER METASTATIC
     Dosage: NOTE: DOSAGE IS UNCERTAIN.
     Route: 041
     Dates: start: 20100520, end: 20100603

REACTIONS (1)
  - INTESTINAL OBSTRUCTION [None]
